FAERS Safety Report 10816066 (Version 1)
Quarter: 2015Q1

REPORT INFORMATION
  Report Type: Report from Study
  Country: US (occurrence: US)
  Receive Date: 20150218
  Receipt Date: 20150218
  Transmission Date: 20150721
  Serious: No
  Sender: FDA-Public Use
  Company Number: US-ABBVIE-14K-163-1284170-00

PATIENT
  Age: 21 Year
  Sex: Female

DRUGS (3)
  1. HUMIRA [Suspect]
     Active Substance: ADALIMUMAB
     Indication: ANKYLOSING SPONDYLITIS
     Route: 065
     Dates: start: 20140707, end: 20140924
  2. PREDNISONE. [Concomitant]
     Active Substance: PREDNISONE
     Indication: UVEITIS
     Dosage: DROPS TO BOTH EYES
  3. PREDNISONE. [Concomitant]
     Active Substance: PREDNISONE
     Indication: UVEITIS

REACTIONS (7)
  - Lower respiratory tract inflammation [Not Recovered/Not Resolved]
  - Injection site induration [Not Recovered/Not Resolved]
  - Injection site pain [Not Recovered/Not Resolved]
  - Chest pain [Not Recovered/Not Resolved]
  - Dyspnoea [Unknown]
  - Inflammation [Unknown]
  - Injection site swelling [Not Recovered/Not Resolved]

NARRATIVE: CASE EVENT DATE: 2014
